FAERS Safety Report 15993313 (Version 2)
Quarter: 2021Q2

REPORT INFORMATION
  Report Type: Spontaneous
  Country: US (occurrence: US)
  Receive Date: 20190222
  Receipt Date: 20210407
  Transmission Date: 20210716
  Serious: Yes (Other)
  Sender: FDA-Public Use
  Company Number: PHEH2019US007154

PATIENT
  Sex: Male

DRUGS (1)
  1. TASIGNA [Suspect]
     Active Substance: NILOTINIB
     Indication: CHRONIC MYELOID LEUKAEMIA
     Dosage: 150 MG, BID
     Route: 048
     Dates: start: 201510, end: 201805

REACTIONS (28)
  - Gastrooesophageal reflux disease [Unknown]
  - Microcytosis [Unknown]
  - Anxiety [Unknown]
  - Hiatus hernia [Unknown]
  - Diverticulitis [Unknown]
  - Myocardial infarction [Unknown]
  - Angina unstable [Unknown]
  - Peripheral arterial occlusive disease [Unknown]
  - Depression [Unknown]
  - Diarrhoea [Unknown]
  - Type 2 diabetes mellitus [Unknown]
  - Chronic kidney disease [Unknown]
  - Hypertension [Unknown]
  - Anaemia [Unknown]
  - Abdominal pain [Unknown]
  - Vertigo [Unknown]
  - Chest pain [Unknown]
  - Dyspepsia [Unknown]
  - Abdominal pain upper [Unknown]
  - Visual impairment [Unknown]
  - Carotid artery occlusion [Unknown]
  - Coronary artery disease [Unknown]
  - Peripheral swelling [Unknown]
  - Emotional distress [Unknown]
  - Pain [Unknown]
  - Arthritis [Unknown]
  - Hyperlipidaemia [Unknown]
  - Hypercholesterolaemia [Unknown]
